FAERS Safety Report 5810897-6 (Version None)
Quarter: 2008Q3

REPORT INFORMATION
  Report Type: 
  Country: None (occurrence: None)
  Receive Date: 20080716
  Receipt Date: 20080703
  Transmission Date: 20090109
  Serious: Yes (Other)
  Sender: FDA-Public Use
  Company Number: PHHY2008ES12811

PATIENT
  Age: 46 Year
  Sex: Male

DRUGS (17)
  1. SIMULECT [Suspect]
     Indication: RENAL TRANSPLANT
     Dosage: 20 MG
     Route: 042
     Dates: start: 20080513
  2. TIMOGLOBULINA [Suspect]
     Indication: RENAL TRANSPLANT
     Dosage: 120 MG, ONCE/SINGLE
     Route: 042
  3. CELLCEPT [Suspect]
     Indication: RENAL TRANSPLANT
     Dosage: 1 G/DAY
     Dates: start: 20080513
  4. PROGRAF [Suspect]
     Indication: RENAL TRANSPLANT
     Dosage: 16 MG/DAY
     Route: 048
     Dates: start: 20080513
  5. PROGRAF [Suspect]
     Dosage: 10 MG/DAY
     Route: 048
     Dates: start: 20080515
  6. SUCCINYLCHOLINE CHLORIDE [Suspect]
     Indication: ANAESTHESIA
     Dosage: 75 MG, ONCE/SINGLE
     Route: 042
     Dates: start: 20080513
  7. PROPOFOL [Suspect]
     Indication: ANAESTHESIA
     Dosage: 650 MG, ONCE/SINGLE
     Route: 042
  8. FENTANEST [Suspect]
     Indication: ANAESTHESIA
     Dosage: 200 MG, ONCE/SINGLE
     Route: 042
  9. NIMBEX [Suspect]
     Indication: ANAESTHESIA
     Dosage: 12 MG, ONCE/SINGLE
     Route: 042
  10. ANACLOSIL [Suspect]
     Indication: PROPHYLAXIS
     Dosage: 2 G/DAY
     Dates: start: 20080513
  11. URBASON [Suspect]
     Dosage: 200 MG
     Dates: start: 20080513
  12. URBASON [Suspect]
     Dosage: 200 MG
     Dates: start: 20080514
  13. URBASON [Suspect]
     Dosage: 100 MG
     Dates: start: 20080515
  14. TOBRADISTIN [Suspect]
     Dosage: 80 MG
     Route: 042
  15. GOBEMYCIN [Suspect]
     Dosage: 2 G
     Route: 042
  16. ZANTAC [Suspect]
     Dosage: 50 MG
     Route: 042
  17. FUROSEMIDE [Suspect]
     Dosage: 250 MG
     Dates: start: 20080513

REACTIONS (3)
  - IMMUNOSUPPRESSANT DRUG LEVEL INCREASED [None]
  - PANCREATITIS ACUTE [None]
  - SPLENOMEGALY [None]
